FAERS Safety Report 9631795 (Version 1)
Quarter: 2013Q4

REPORT INFORMATION
  Report Type: Spontaneous
  Country: US (occurrence: US)
  Receive Date: 20131018
  Receipt Date: 20131018
  Transmission Date: 20140711
  Serious: No
  Sender: FDA-Public Use
  Company Number: US-BAYER-2013-126430

PATIENT
  Sex: 0

DRUGS (4)
  1. ALEVE CAPLET [Suspect]
     Indication: ARTHRALGIA
     Dosage: UNK
  2. ADVIL [Concomitant]
  3. TYLENOL [PARACETAMOL] [Concomitant]
  4. GOODYS [Concomitant]

REACTIONS (1)
  - Drug ineffective [None]
